FAERS Safety Report 17437078 (Version 2)
Quarter: 2020Q1

REPORT INFORMATION
  Report Type: Spontaneous
  Country: IT (occurrence: IT)
  Receive Date: 20200219
  Receipt Date: 20200317
  Transmission Date: 20200409
  Serious: No
  Sender: FDA-Public Use
  Company Number: IT-EMD SERONO-9145450

PATIENT
  Age: 21 Year
  Sex: Female
  Weight: 48 kg

DRUGS (3)
  1. MAVENCLAD [Suspect]
     Active Substance: CLADRIBINE
     Indication: MULTIPLE SCLEROSIS
     Dosage: CYCLE ONE THERAPY.
     Dates: start: 20191115, end: 20191118
  2. MAVENCLAD [Suspect]
     Active Substance: CLADRIBINE
     Dosage: CYCLE TWO THERAPY
     Dates: start: 20191215, end: 20191218
  3. TAPAZOLE [Concomitant]
     Active Substance: METHIMAZOLE
     Indication: HYPERTHYROIDISM
     Dosage: DISCONTINUED DUE TO NORMALITY OF THE HORMONAL VALUES.
     Dates: start: 201909

REACTIONS (3)
  - Gingival bleeding [Recovered/Resolved]
  - Dental discomfort [Recovered/Resolved]
  - Lymphopenia [Unknown]

NARRATIVE: CASE EVENT DATE: 201911
